FAERS Safety Report 9837832 (Version 1)
Quarter: 2014Q1

REPORT INFORMATION
  Report Type: Spontaneous
  Country: US (occurrence: None)
  Receive Date: 20140117
  Receipt Date: 20140117
  Transmission Date: 20141002
  Serious: Yes (Life-Threatening, Hospitalization)
  Sender: FDA-Public Use
  Company Number: None

PATIENT
  Age: 75 Year
  Sex: Male
  Weight: 77 kg

DRUGS (19)
  1. REMERON [Suspect]
     Dosage: REMERON 15MG BID ORAL
     Route: 048
     Dates: start: 20140112, end: 20140114
  2. ARIPIPRAZOLE (ABILIFY) [Concomitant]
  3. AMLODIPINE (NORVASC) [Concomitant]
  4. ASPIRIN [Concomitant]
  5. ATORVASTATIN (LIPITOR) [Concomitant]
  6. CLONIDINE (CATAPRES) [Concomitant]
  7. DOXAZOSIN (CARDURA) [Concomitant]
  8. FENOFIBRATE NANOCRYSTALLIZED (TRICOR) [Concomitant]
  9. FERROUS SULFATE (FEOSOL) [Concomitant]
  10. POTASSIUM CHLORIDE (K-DUR, KLOR-CON M) SR [Concomitant]
  11. LISINOPRIL (PRINIVIL, ZESTRIL) [Concomitant]
  12. METFORMIN (GLUCOPHAGE) [Concomitant]
  13. CALCIUM CARBONATE-VITAMIN D3 (OS-CAL 250 + D) [Concomitant]
  14. RISEDRONATE (ACTONEL) [Concomitant]
  15. POLYETHYLENE GLYCOL (MIRALAX) [Concomitant]
  16. TAMSULOSIN (FLOMAX) SR [Concomitant]
  17. METOPROLOL TARTRATE (LOPRESSOR) [Concomitant]
  18. REMERON [Concomitant]
  19. CLOMIPRAMINE [Concomitant]

REACTIONS (2)
  - Serotonin syndrome [None]
  - Hypertension [None]
